FAERS Safety Report 14146403 (Version 2)
Quarter: 2017Q4

REPORT INFORMATION
  Report Type: Spontaneous
  Country: None (occurrence: MZ)
  Receive Date: 20171031
  Receipt Date: 20171128
  Transmission Date: 20180321
  Serious: Yes (Other)
  Sender: FDA-Public Use
  Company Number: MZ-POPULATION COUNCIL, INC.-2032870

PATIENT
  Age: 38 Year
  Sex: Female
  Weight: 82 kg

DRUGS (4)
  1. LAMIVUDINE. [Interacting]
     Active Substance: LAMIVUDINE
     Route: 048
     Dates: start: 201210
  2. TENOFOVIR DISOPROXIL FUMARATE. [Interacting]
     Active Substance: TENOFOVIR DISOPROXIL FUMARATE
     Route: 048
     Dates: start: 201210
  3. SUSTIVA [Interacting]
     Active Substance: EFAVIRENZ
     Route: 048
     Dates: start: 201210
  4. JADELLE [Suspect]
     Active Substance: LEVONORGESTREL
     Indication: CONTRACEPTION
     Dates: start: 20150706, end: 20170911

REACTIONS (3)
  - Labelled drug-disease interaction medication error [None]
  - Pregnancy with implant contraceptive [None]
  - Stillbirth [None]

NARRATIVE: CASE EVENT DATE: 2017
